FAERS Safety Report 8512868-8 (Version None)
Quarter: 2012Q3

REPORT INFORMATION
  Report Type: 
  Country: None (occurrence: None)
  Receive Date: 20120716
  Receipt Date: 20120710
  Transmission Date: 20120928
  Serious: No
  Sender: FDA-Public Use
  Company Number: US-TEVA-347717USA

PATIENT
  Sex: Female

DRUGS (1)
  1. NUVIGIL [Suspect]
     Indication: HYPERSOMNIA
     Dosage: 500 MILLIGRAM;
     Route: 048

REACTIONS (1)
  - OFF LABEL USE [None]
